FAERS Safety Report 4289596-0 (Version None)
Quarter: 2004Q1

REPORT INFORMATION
  Report Type: 
  Country: None (occurrence: None)
  Receive Date: 20040126
  Receipt Date: 20030213
  Transmission Date: 20041129
  Serious: Yes (Hospitalization)
  Sender: FDA-Public Use
  Company Number: 325906

PATIENT
  Age: 77 Year
  Sex: Male
  Weight: 85.7 kg

DRUGS (3)
  1. TORADOL [Suspect]
     Indication: POST PROCEDURAL PAIN
     Dosage: 15 MG 1 PER 25 MINUTE INTRAVENOUS
     Route: 042
     Dates: start: 20020814, end: 20020815
  2. TORADOL [Suspect]
     Indication: POSTOPERATIVE ANALGESIA
     Dosage: 15 MG 1 PER 25 MINUTE INTRAVENOUS
     Route: 042
     Dates: start: 20020814, end: 20020815
  3. . [Concomitant]
     Dosage: NA

REACTIONS (2)
  - OLIGURIA [None]
  - RENAL FAILURE ACUTE [None]
